FAERS Safety Report 9308024 (Version 3)
Quarter: 2013Q3

REPORT INFORMATION
  Report Type: Spontaneous
  Country: US (occurrence: US)
  Receive Date: 20130524
  Receipt Date: 20130722
  Transmission Date: 20140515
  Serious: No
  Sender: FDA-Public Use
  Company Number: US-PFIZER INC-2013158663

PATIENT
  Age: 70 Year
  Sex: Female
  Weight: 73 kg

DRUGS (4)
  1. LEVOXYL [Suspect]
     Indication: THYROID DISORDER
     Dosage: 0.1 MG, 1X/DAY
     Route: 048
     Dates: start: 2004
  2. LEVOXYL [Suspect]
     Dosage: 0.1 MG, 1X/DAY
     Route: 048
  3. LANTUS [Concomitant]
     Indication: DIABETES MELLITUS
     Dosage: UNK, 1X/DAY
  4. NOVOLOG [Concomitant]
     Indication: DIABETES MELLITUS
     Dosage: UNK, 3X/DAY

REACTIONS (4)
  - Fatigue [Not Recovered/Not Resolved]
  - Depressed mood [Not Recovered/Not Resolved]
  - Sluggishness [Not Recovered/Not Resolved]
  - Weight increased [Not Recovered/Not Resolved]
